FAERS Safety Report 23527239 (Version 1)
Quarter: 2024Q1

REPORT INFORMATION
  Report Type: Spontaneous
  Country: US (occurrence: US)
  Receive Date: 20240215
  Receipt Date: 20240215
  Transmission Date: 20240410
  Serious: No
  Sender: FDA-Public Use
  Company Number: US-TOLMAR, INC.-24US046561

PATIENT
  Sex: Male

DRUGS (5)
  1. JATENZO [Suspect]
     Active Substance: TESTOSTERONE UNDECANOATE
     Indication: Androgen deficiency
     Dosage: 237 MILLIGRAM, BID
     Route: 048
     Dates: start: 202308
  2. JATENZO [Suspect]
     Active Substance: TESTOSTERONE UNDECANOATE
     Dosage: 237 MILLIGRAM, BID
     Route: 048
     Dates: start: 202312
  3. METFORMIN [Concomitant]
     Active Substance: METFORMIN HYDROCHLORIDE
     Indication: Product used for unknown indication
  4. ATORVASTATIN [Concomitant]
     Active Substance: ATORVASTATIN
     Indication: Product used for unknown indication
  5. LOSARTAN [Concomitant]
     Active Substance: LOSARTAN
     Indication: Hypertension

REACTIONS (3)
  - Hypotrichosis [Not Recovered/Not Resolved]
  - Blood testosterone abnormal [Not Recovered/Not Resolved]
  - Loss of libido [Not Recovered/Not Resolved]

NARRATIVE: CASE EVENT DATE: 20231201
